FAERS Safety Report 15999694 (Version 1)
Quarter: 2019Q1

REPORT INFORMATION
  Report Type: Spontaneous
  Country: CA (occurrence: CA)
  Receive Date: 20190225
  Receipt Date: 20190225
  Transmission Date: 20190418
  Serious: Yes (Hospitalization, Other)
  Sender: FDA-Public Use
  Company Number: CA-APOTEX-2019AP008210

PATIENT
  Age: 55 Year
  Sex: Male

DRUGS (4)
  1. METHYLPREDNISOLONE. [Concomitant]
     Active Substance: METHYLPREDNISOLONE
     Indication: IMMUNOSUPPRESSION
     Route: 065
  2. TACROLIMUS. [Concomitant]
     Active Substance: TACROLIMUS
     Indication: IMMUNOSUPPRESSION
     Route: 065
  3. MYCOPHENOLATE [Suspect]
     Active Substance: MYCOPHENOLIC ACID
     Indication: IMMUNOSUPPRESSION
     Route: 065
  4. BASILIXIMAB [Concomitant]
     Active Substance: BASILIXIMAB
     Indication: IMMUNOSUPPRESSION
     Route: 065

REACTIONS (8)
  - Limbic encephalitis [Unknown]
  - Perineal ulceration [Unknown]
  - Hepatitis A [Recovered/Resolved]
  - Neutropenia [Recovered/Resolved]
  - Sepsis [Unknown]
  - Herpes simplex [Unknown]
  - Lymphopenia [Unknown]
  - Pneumonia [Unknown]
